FAERS Safety Report 19762878 (Version 1)
Quarter: 2021Q3

REPORT INFORMATION
  Report Type: Spontaneous
  Country: US (occurrence: US)
  Receive Date: 20210827
  Receipt Date: 20210827
  Transmission Date: 20211014
  Serious: Yes (Death)
  Sender: FDA-Public Use
  Company Number: None

PATIENT
  Age: 76 Year
  Sex: Male
  Weight: 102 kg

DRUGS (2)
  1. REMDESIVIR (REMDESIVIR 100MG/VIAL INJ) [Suspect]
     Active Substance: REMDESIVIR
     Route: 042
     Dates: start: 20210806, end: 20210809
  2. TOCILIZUMAB (TOCILIZUMAB 20MG/ML INJ,SOLN,10ML) [Suspect]
     Active Substance: TOCILIZUMAB
     Route: 042
     Dates: start: 20210806, end: 20210807

REACTIONS (2)
  - Staphylococcal bacteraemia [None]
  - Deep vein thrombosis [None]

NARRATIVE: CASE EVENT DATE: 20210809
